FAERS Safety Report 4618955-9 (Version None)
Quarter: 2005Q1

REPORT INFORMATION
  Report Type: 
  Country: None (occurrence: None)
  Receive Date: 20050325
  Receipt Date: 20050315
  Transmission Date: 20050727
  Serious: Yes (Life-Threatening, Hospitalization, Other)
  Sender: FDA-Public Use
  Company Number: GB-JNJFOC-20050304128

PATIENT
  Sex: Female
  Weight: 90 kg

DRUGS (8)
  1. REMICADE [Suspect]
     Indication: RHEUMATOID ARTHRITIS
     Route: 042
  2. METHOTREXATE [Concomitant]
  3. FOLIC ACID [Concomitant]
  4. PREDNISOLONE [Concomitant]
  5. FOSAMAX [Concomitant]
  6. THYROXINE [Concomitant]
  7. AMLODIPINE [Concomitant]
  8. DICLOFENAC [Concomitant]

REACTIONS (1)
  - BREAST CANCER [None]
